FAERS Safety Report 9052762 (Version 3)
Quarter: 2013Q2

REPORT INFORMATION
  Report Type: Spontaneous
  Country: JP (occurrence: JP)
  Receive Date: 20130207
  Receipt Date: 20130523
  Transmission Date: 20140414
  Serious: Yes (Hospitalization)
  Sender: FDA-Public Use
  Company Number: JP-BRISTOL-MYERS SQUIBB COMPANY-17340050

PATIENT
  Age: 59 Year
  Sex: Male

DRUGS (1)
  1. HYDREA CAPS 500 MG [Suspect]
     Route: 048
     Dates: start: 20130117

REACTIONS (1)
  - Respiratory failure [Recovering/Resolving]
